FAERS Safety Report 9608513 (Version 1)
Quarter: 2013Q4

REPORT INFORMATION
  Report Type: Spontaneous
  Country: JP (occurrence: JP)
  Receive Date: 20131009
  Receipt Date: 20131009
  Transmission Date: 20140711
  Serious: Yes (Death)
  Sender: FDA-Public Use
  Company Number: JP-COVIDIEN/TYCO HEALTHCARE/MALLINCKRODT-T201304527

PATIENT
  Age: 45 Year
  Sex: Male

DRUGS (15)
  1. METHADONE [Suspect]
     Indication: CANCER PAIN
     Dosage: 10 MG, BID
     Route: 048
     Dates: start: 20130918, end: 20130921
  2. OXYNORM [Concomitant]
     Dosage: 40 MG, PRN
     Route: 048
     Dates: start: 20130918, end: 20130919
  3. OXYFAST [Concomitant]
     Dosage: 6.4 MG, UNK
     Route: 058
     Dates: start: 20130920, end: 20130922
  4. OXYCONTIN [Concomitant]
     Dosage: 200 MG, PRN
     Route: 058
     Dates: end: 20130920
  5. LOXONIN [Concomitant]
     Dosage: 240 MG, UNK
     Route: 048
     Dates: end: 20130921
  6. ISOBIDE                            /00586301/ [Concomitant]
     Dosage: 140 ML, UNK
     Route: 048
     Dates: end: 20130919
  7. SOLANAX [Concomitant]
     Dosage: .4 MG, UNK
     Route: 048
     Dates: end: 20130921
  8. TAKEPRON [Concomitant]
     Dosage: 15 MG, UNK
     Route: 048
     Dates: end: 20130921
  9. MAGMITT [Concomitant]
     Dosage: 1500 UNK, UNK
     Route: 048
     Dates: end: 20130921
  10. RINDERON                           /00008501/ [Concomitant]
     Dosage: 2 MG, UNK
     Route: 058
     Dates: start: 20130918, end: 20130920
  11. RINDERON                           /00008501/ [Concomitant]
     Dosage: 4 UNK, UNK
     Route: 058
     Dates: start: 20130921
  12. GLYCEOL                            /00744501/ [Concomitant]
     Dosage: 400 ML, UNK
     Route: 051
     Dates: start: 20130920
  13. TRAVELMIN                          /00517301/ [Concomitant]
     Dosage: 2 ML, UNK
     Route: 058
     Dates: start: 20130920, end: 20130921
  14. TRAVELMIN                          /00517301/ [Concomitant]
     Dosage: 1 ML, UNK
     Route: 058
     Dates: start: 20130922
  15. DORMICUM                           /00036201/ [Concomitant]
     Dosage: 60 MG, UNK
     Route: 058
     Dates: start: 20130921

REACTIONS (1)
  - Disease progression [Fatal]
